FAERS Safety Report 9850965 (Version 3)
Quarter: 2014Q2

REPORT INFORMATION
  Report Type: Spontaneous
  Country: CH (occurrence: CH)
  Receive Date: 20140128
  Receipt Date: 20140507
  Transmission Date: 20141212
  Serious: Yes (Other)
  Sender: FDA-Public Use
  Company Number: CH-ASTRAZENECA-2014SE01490

PATIENT
  Age: 1140 Day
  Sex: Female

DRUGS (2)
  1. ARIMIDEX [Suspect]
     Indication: PRECOCIOUS PUBERTY
     Route: 048
     Dates: start: 20131210, end: 20131223
  2. ARIMIDEX [Suspect]
     Indication: ALBRIGHT^S DISEASE
     Route: 048
     Dates: start: 20131210, end: 20131223

REACTIONS (2)
  - Oestradiol increased [Recovering/Resolving]
  - Off label use [Unknown]
